FAERS Safety Report 16899516 (Version 1)
Quarter: 2019Q4

REPORT INFORMATION
  Report Type: Spontaneous
  Country: GB (occurrence: GB)
  Receive Date: 20191009
  Receipt Date: 20191009
  Transmission Date: 20200122
  Serious: Yes (Hospitalization)
  Sender: FDA-Public Use
  Company Number: GB-ASCEND THERAPEUTICS US, LLC-2075464

PATIENT
  Age: 42 Year
  Sex: Male

DRUGS (3)
  1. ESTROGEL [Suspect]
     Active Substance: ESTRADIOL
     Indication: TRANSGENDER HORMONAL THERAPY
  2. ETHINYLESTRADIOL (ETHINYLESTRADIOL), UNKNOWN?INDICATIONS FOR USE: TRAN [Suspect]
     Active Substance: ETHINYL ESTRADIOL
     Route: 048
  3. SPIRONOLACTONE. [Suspect]
     Active Substance: SPIRONOLACTONE
     Route: 048

REACTIONS (4)
  - Drug abuse [Unknown]
  - Pulmonary embolism [Recovering/Resolving]
  - Self-medication [Recovered/Resolved]
  - Off label use [Unknown]
